FAERS Safety Report 9015312 (Version 1)
Quarter: 2013Q1

REPORT INFORMATION
  Report Type: Spontaneous
  Country: US (occurrence: None)
  Receive Date: 20130103
  Receipt Date: 20130103
  Transmission Date: 20140127
  Serious: Yes (Hospitalization)
  Sender: FDA-Public Use
  Company Number: 2012SUN00380

PATIENT
  Age: 8 Year
  Sex: Female

DRUGS (1)
  1. AMITRIPTYLINE HYDROCHLORIDE [Suspect]
     Indication: HEADACHE

REACTIONS (12)
  - Accidental overdose [None]
  - Toxicity to various agents [None]
  - Mental status changes [None]
  - Feeling abnormal [None]
  - Abnormal behaviour [None]
  - Unresponsive to stimuli [None]
  - Lethargy [None]
  - Gait disturbance [None]
  - Status epilepticus [None]
  - Sinus tachycardia [None]
  - Electrocardiogram abnormal [None]
  - Drug screen positive [None]
